FAERS Safety Report 5192841-0 (Version None)
Quarter: 2006Q4

REPORT INFORMATION
  Report Type: 
  Country: None (occurrence: None)
  Receive Date: 20061228
  Receipt Date: 20051214
  Transmission Date: 20070319
  Serious: No
  Sender: FDA-Public Use
  Company Number: US-GLAXOSMITHKLINE-A0585858A

PATIENT
  Age: 82 Year
  Sex: Female

DRUGS (6)
  1. FLONASE [Suspect]
     Dosage: 50MCG TWICE PER DAY
     Route: 045
     Dates: start: 20050201
  2. ZOCOR [Concomitant]
  3. CALCIUM D [Concomitant]
  4. GLAUCOMA EYE DROPS (UNSPECIFIED) [Concomitant]
  5. DIURETIC [Concomitant]
  6. THYROID TAB [Concomitant]

REACTIONS (3)
  - ALOPECIA [None]
  - ILL-DEFINED DISORDER [None]
  - RHINORRHOEA [None]
